FAERS Safety Report 10648972 (Version 2)
Quarter: 2014Q4

REPORT INFORMATION
  Report Type: Spontaneous
  Country: FR (occurrence: None)
  Receive Date: 20141210
  Receipt Date: 20141215
  Transmission Date: 20150529
  Serious: Yes (Other)
  Sender: FDA-Public Use
  Company Number: 2014FR010474

PATIENT
  Age: 65 Year
  Sex: Male
  Weight: 85 kg

DRUGS (1)
  1. ELIGARD [Suspect]
     Active Substance: LEUPROLIDE ACETATE
     Indication: PROSTATE CANCER
     Dosage: EVERY 6 MONTHS DURING 3 YEARS
     Route: 058
     Dates: start: 20131115, end: 20140426

REACTIONS (4)
  - Hyperlipidaemia [None]
  - Hypertension [None]
  - Unevaluable event [None]
  - Hepatocellular injury [None]

NARRATIVE: CASE EVENT DATE: 20140426
